FAERS Safety Report 16992293 (Version 1)
Quarter: 2019Q4

REPORT INFORMATION
  Report Type: Spontaneous
  Country: US (occurrence: US)
  Receive Date: 20191104
  Receipt Date: 20191104
  Transmission Date: 20200122
  Serious: Yes (Other)
  Sender: FDA-Public Use
  Company Number: None

PATIENT
  Age: 43 Year
  Sex: Female
  Weight: 76.5 kg

DRUGS (1)
  1. SALINE NASAL [Suspect]
     Active Substance: SODIUM CHLORIDE
     Indication: HYPERSENSITIVITY
     Route: 045
     Dates: start: 20180430, end: 20181031

REACTIONS (4)
  - Otitis media [None]
  - Facial pain [None]
  - Deafness bilateral [None]
  - Cough [None]

NARRATIVE: CASE EVENT DATE: 20180513
